FAERS Safety Report 7377149-7 (Version None)
Quarter: 2011Q1

REPORT INFORMATION
  Report Type: 
  Country: None (occurrence: None)
  Receive Date: 20110328
  Receipt Date: 20110318
  Transmission Date: 20110831
  Serious: No
  Sender: FDA-Public Use
  Company Number: US-BIOGENIDEC-2011BI010551

PATIENT
  Age: 67 Year
  Sex: Male

DRUGS (1)
  1. TYSABRI [Suspect]
     Indication: MULTIPLE SCLEROSIS
     Route: 042
     Dates: start: 20101119

REACTIONS (1)
  - ABDOMINAL DISCOMFORT [None]
